FAERS Safety Report 10374981 (Version 1)
Quarter: 2014Q3

REPORT INFORMATION
  Report Type: Spontaneous
  Country: US (occurrence: None)
  Receive Date: 20140808
  Receipt Date: 20140808
  Transmission Date: 20150326
  Serious: Yes (Other)
  Sender: FDA-Public Use
  Company Number: None

PATIENT

DRUGS (2)
  1. MARCAINE [Suspect]
     Active Substance: BUPIVACAINE HYDROCHLORIDE
     Indication: PAIN
     Route: 008
     Dates: start: 20140701, end: 20140712
  2. OXYCOCIN [Concomitant]

REACTIONS (2)
  - Treatment failure [None]
  - Anaesthetic complication [None]

NARRATIVE: CASE EVENT DATE: 20140712
